FAERS Safety Report 5242063-X (Version None)
Quarter: 2007Q1

REPORT INFORMATION
  Report Type: 
  Country: None (occurrence: None)
  Receive Date: 20070220
  Receipt Date: 20070212
  Transmission Date: 20070707
  Serious: Yes (Death, Life-Threatening, Hospitalization, Other)
  Sender: FDA-Public Use
  Company Number: ZA-ALLERGAN-0607327US

PATIENT
  Age: 40 Year
  Sex: Female
  Weight: 65 kg

DRUGS (4)
  1. BOTOX [Suspect]
     Indication: SKIN WRINKLING
     Dosage: 22 UNITS, SINGLE
     Route: 030
     Dates: start: 20060727, end: 20060727
  2. BOTOX [Suspect]
     Dosage: 22 UNITS, SINGLE
     Route: 030
     Dates: start: 20061025, end: 20061025
  3. NATRILIX                           /00340101/ [Concomitant]
     Indication: HYPERTENSION
  4. DIANE [Concomitant]
     Indication: DRUG USE FOR UNKNOWN INDICATION

REACTIONS (15)
  - BACK PAIN [None]
  - BRAIN OEDEMA [None]
  - CARDIAC ARREST [None]
  - CYTOMEGALOVIRUS INFECTION [None]
  - DIZZINESS [None]
  - GUILLAIN-BARRE SYNDROME [None]
  - HYPOTENSION [None]
  - LUNG INJURY [None]
  - MUSCLE SPASMS [None]
  - MUSCULAR WEAKNESS [None]
  - NAUSEA [None]
  - ORGAN FAILURE [None]
  - PULMONARY OEDEMA [None]
  - RESPIRATORY ARREST [None]
  - VENTRICULAR FIBRILLATION [None]
